FAERS Safety Report 13833402 (Version 4)
Quarter: 2017Q3

REPORT INFORMATION
  Report Type: Spontaneous
  Country: MX (occurrence: MX)
  Receive Date: 20170803
  Receipt Date: 20170829
  Transmission Date: 20171127
  Serious: Yes (Disabling, Other)
  Sender: FDA-Public Use
  Company Number: MX-BAUSCH-BL-2017-022912

PATIENT
  Age: 10 Year
  Sex: Female
  Weight: 32 kg

DRUGS (3)
  1. MESTINON [Suspect]
     Active Substance: PYRIDOSTIGMINE BROMIDE
     Dosage: ADMINISTERED TWO DAYS AND SKIPPED ONE-DAY TREATMENT IN CYCLE
     Route: 048
     Dates: end: 20170721
  2. MESTINON [Suspect]
     Active Substance: PYRIDOSTIGMINE BROMIDE
     Indication: BODY HEIGHT BELOW NORMAL
     Dosage: 1 TABLET 60 MG EVERY 24 HOURS AT NIGHT
     Route: 048
     Dates: start: 20160616
  3. NOOTROPIL [Suspect]
     Active Substance: PIRACETAM
     Indication: DYSLALIA
     Dosage: 20G/ 100 ML, 3ML IN THE MORNING AND IN THE AFTERNOON
     Route: 065
     Dates: start: 20170804

REACTIONS (7)
  - Salivary hypersecretion [Recovered/Resolved]
  - Pollakiuria [Recovered/Resolved]
  - Off label use [Recovered/Resolved]
  - Arrhythmia [Recovered/Resolved]
  - Dyslalia [Not Recovered/Not Resolved]
  - Hyperhidrosis [Recovered/Resolved]
  - Headache [Recovered/Resolved with Sequelae]

NARRATIVE: CASE EVENT DATE: 20160616
